FAERS Safety Report 10690327 (Version 1)
Quarter: 2014Q4

REPORT INFORMATION
  Report Type: Spontaneous
  Country: US (occurrence: None)
  Receive Date: 20141222
  Receipt Date: 20141222
  Transmission Date: 20150529
  Serious: Yes (Other)
  Sender: FDA-Public Use
  Company Number: 1713747-2013-99980

PATIENT
  Age: 63 Year
  Sex: Male
  Weight: 80.9 kg

DRUGS (2)
  1. LIBERTY CYCLER [Concomitant]
     Active Substance: DEVICE
  2. DELFLEX WITH DEXTROSE 1.5% [Suspect]
     Active Substance: CALCIUM CHLORIDE\DEXTROSE MONOHYDRATE\MAGNESIUM CHLORIDE\SODIUM CHLORIDE\SODIUM LACTATE

REACTIONS (1)
  - Peritonitis [None]

NARRATIVE: CASE EVENT DATE: 20131127
